FAERS Safety Report 19854396 (Version 1)
Quarter: 2021Q3

REPORT INFORMATION
  Report Type: Spontaneous
  Country: US (occurrence: US)
  Receive Date: 20210920
  Receipt Date: 20210920
  Transmission Date: 20211014
  Serious: Yes (Other)
  Sender: FDA-Public Use
  Company Number: US-JNJFOC-20210921658

PATIENT
  Age: 6 Decade
  Sex: Male

DRUGS (1)
  1. NEUTROGENA ULTRA SHEER BODY MIST SUNSCREEN BROAD SPECTRUM SPF 100 PLUS [Suspect]
     Active Substance: AVOBENZONE\HOMOSALATE\OCTISALATE\OCTOCRYLENE\OXYBENZONE
     Indication: PRODUCT USED FOR UNKNOWN INDICATION
     Dosage: JUST SPRAY ON FACE , ARMS AND LEGS TWICE DAILY, WHEN ON TOURNAMENT THREE TIMES,?MORE THAN 10 YEARS
     Route: 061

REACTIONS (1)
  - Skin cancer [Not Recovered/Not Resolved]
